FAERS Safety Report 4606840-8 (Version None)
Quarter: 2005Q1

REPORT INFORMATION
  Report Type: 
  Country: None (occurrence: None)
  Receive Date: 20050310
  Receipt Date: 20040930
  Transmission Date: 20050727
  Serious: Yes (Hospitalization, Other)
  Sender: FDA-Public Use
  Company Number: C-04-0053

PATIENT
  Age: 4 Month
  Sex: Female
  Weight: 7.2576 kg

DRUGS (1)
  1. METOCLOPRAMIDE [Suspect]
     Indication: GASTROOESOPHAGEAL REFLUX DISEASE
     Dosage: 1 ML ORALLY BEFORE MEALS AND AT BEDTIME
     Dates: start: 20040928

REACTIONS (3)
  - DYSTONIA [None]
  - EYE ROLLING [None]
  - REGURGITATION OF FOOD [None]
